FAERS Safety Report 9166802 (Version 1)
Quarter: 2012Q4

REPORT INFORMATION
  Report Type: 
  Country: US (occurrence: US)
  Receive Date: 20121114
  Receipt Date: 20121114
  Transmission Date: 20130627
  Serious: No
  Sender: FDA-Public Use
  Company Number: US-RB-043904-12

PATIENT
  Sex: Male

DRUGS (4)
  1. SUBOXONE TABLET [Suspect]
     Dosage: 1/2 tablet intermittently
     Route: 060
     Dates: start: 2008, end: 2009
  2. SUBOXONE TABLET [Suspect]
     Indication: DRUG DEPENDENCE
     Dosage: 1/2 tablet 3 times daily
     Route: 060
     Dates: start: 2009, end: 201210
  3. SUBOXONE FILM [Suspect]
     Indication: DRUG DEPENDENCE
     Dosage: Suboxone film; 1/2 strip 3 times daily
     Route: 060
     Dates: start: 201210
  4. HEROIN [Suspect]
     Indication: DRUG DEPENDENCE
     Dosage: Drug details unknown
     Route: 065
     Dates: end: 2009

REACTIONS (4)
  - Substance abuse [Recovered/Resolved]
  - Wrong technique in drug usage process [Not Recovered/Not Resolved]
  - Drug abuse [Recovered/Resolved]
  - Drug dependence [Not Recovered/Not Resolved]
